FAERS Safety Report 6023312-7 (Version None)
Quarter: 2008Q4

REPORT INFORMATION
  Report Type: 
  Country: None (occurrence: None)
  Receive Date: 20081230
  Receipt Date: 20081224
  Transmission Date: 20090506
  Serious: Yes (Disabling)
  Sender: FDA-Public Use
  Company Number: JP-ASTRAZENECA-2008AP09871

PATIENT
  Age: 44 Year
  Sex: Female
  Weight: 49 kg

DRUGS (3)
  1. NAROPIN [Suspect]
     Indication: EPIDURAL ANAESTHESIA
     Dosage: 7.5 MG/ML
     Route: 008
  2. NAROPIN [Suspect]
     Dosage: 2 MG/ML
     Route: 008
  3. CARBOCAIN [Concomitant]
     Indication: EPIDURAL TEST DOSE
     Route: 008

REACTIONS (5)
  - HYPOAESTHESIA [None]
  - MUSCULAR WEAKNESS [None]
  - NERVE ROOT LESION [None]
  - NO THERAPEUTIC RESPONSE [None]
  - SCIATIC NERVE NEUROPATHY [None]
